FAERS Safety Report 21227778 (Version 7)
Quarter: 2025Q1

REPORT INFORMATION
  Report Type: Spontaneous
  Country: US (occurrence: US)
  Receive Date: 20220818
  Receipt Date: 20250212
  Transmission Date: 20250409
  Serious: Yes (Other)
  Sender: PFIZER
  Company Number: US-PFIZER INC-PV202200044986

PATIENT
  Age: 68 Year
  Sex: Female
  Weight: 104.33 kg

DRUGS (4)
  1. IBRANCE [Suspect]
     Active Substance: PALBOCICLIB
     Indication: Breast cancer metastatic
     Dosage: 125 MG, 1X/DAY (EVERY NIGHT)
  2. IBRANCE [Suspect]
     Active Substance: PALBOCICLIB
  3. LETROZOLE [Concomitant]
     Active Substance: LETROZOLE
     Indication: Breast cancer metastatic
     Dosage: 2.5 MG, 1X/DAY/AT NIGHT/I TAKE IT EVERYDAY
     Dates: start: 201608
  4. TRAMADOL [Concomitant]
     Active Substance: TRAMADOL

REACTIONS (6)
  - Mastectomy [Unknown]
  - Intervertebral disc degeneration [Unknown]
  - Aphonia [Unknown]
  - Weight decreased [Unknown]
  - Back disorder [Unknown]
  - Abdominal discomfort [Unknown]

NARRATIVE: CASE EVENT DATE: 20220101
